FAERS Safety Report 11362178 (Version 3)
Quarter: 2015Q3

REPORT INFORMATION
  Report Type: Report from Study
  Country: BR (occurrence: BR)
  Receive Date: 20150810
  Receipt Date: 20150902
  Transmission Date: 20151125
  Serious: Yes (Hospitalization)
  Sender: FDA-Public Use
  Company Number: BR-SA-2015SA116961

PATIENT
  Age: 29 Year
  Sex: Female
  Weight: 57 kg

DRUGS (8)
  1. LANTUS [Suspect]
     Active Substance: INSULIN GLARGINE
     Indication: DIABETES MELLITUS
     Route: 058
     Dates: start: 2013
  2. SOLOSTAR [Concomitant]
     Active Substance: DEVICE
     Indication: TYPE 1 DIABETES MELLITUS
     Route: 058
     Dates: start: 2013
  3. LANTUS [Suspect]
     Active Substance: INSULIN GLARGINE
     Indication: DIABETES MELLITUS
     Route: 058
  4. CLIKSTAR [Concomitant]
     Active Substance: CLIKSTAR
     Indication: DEVICE THERAPY
     Dates: start: 2013
  5. ATORVASTATIN [Concomitant]
     Active Substance: ATORVASTATIN
     Indication: BLOOD CHOLESTEROL
     Route: 048
  6. APIDRA SOLOSTAR [Suspect]
     Active Substance: INSULIN GLULISINE
     Indication: DIABETES MELLITUS
     Dosage: 3 IU AFTER BREAKFAST, 5 IU AFTER LUNCH AND 3 IU AFTER DINNER
     Route: 058
     Dates: start: 2013
  7. ENALAPRIL [Concomitant]
     Active Substance: ENALAPRIL
     Indication: BLOOD PRESSURE MEASUREMENT
     Route: 048
  8. GABAPENTIN. [Concomitant]
     Active Substance: GABAPENTIN
     Indication: PAIN
     Route: 048

REACTIONS (9)
  - Blood glucose increased [Not Recovered/Not Resolved]
  - Furuncle [Recovering/Resolving]
  - Swelling [Recovered/Resolved]
  - Infection [Recovered/Resolved]
  - Headache [Not Recovered/Not Resolved]
  - Pyrexia [Recovered/Resolved]
  - Dry mouth [Not Recovered/Not Resolved]
  - Vomiting [Not Recovered/Not Resolved]
  - Pollakiuria [Not Recovered/Not Resolved]

NARRATIVE: CASE EVENT DATE: 2015
